FAERS Safety Report 18950369 (Version 2)
Quarter: 2023Q1

REPORT INFORMATION
  Report Type: Spontaneous
  Country: US (occurrence: None)
  Receive Date: 20210228
  Receipt Date: 20230223
  Transmission Date: 20230418
  Serious: No
  Sender: FDA-Public Use
  Company Number: US-ROCHE-2731525

PATIENT
  Sex: Female

DRUGS (4)
  1. XOLAIR [Suspect]
     Active Substance: OMALIZUMAB
     Indication: Idiopathic urticaria
     Dosage: STRENGTH:150 MG/ML
     Route: 058
     Dates: start: 202008
  2. XOLAIR [Suspect]
     Active Substance: OMALIZUMAB
  3. XOLAIR [Suspect]
     Active Substance: OMALIZUMAB
     Indication: Immunodeficiency common variable
     Dosage: STRENGTH:150 MG/ML
     Route: 058
     Dates: start: 202206
  4. XOLAIR [Suspect]
     Active Substance: OMALIZUMAB

REACTIONS (8)
  - Tinnitus [Unknown]
  - Temperature intolerance [Unknown]
  - Decreased appetite [Unknown]
  - Infusion related reaction [Unknown]
  - Pain [Unknown]
  - Pruritus [Unknown]
  - Swelling [Unknown]
  - Tinnitus [Unknown]
